FAERS Safety Report 7622333-8 (Version None)
Quarter: 2011Q3

REPORT INFORMATION
  Report Type: 
  Country: None (occurrence: None)
  Receive Date: 20110720
  Receipt Date: 20090417
  Transmission Date: 20111222
  Serious: Yes (Death, Other)
  Sender: FDA-Public Use
  Company Number: US-BAYER-200919996NA

PATIENT
  Age: 57 Year
  Sex: Male
  Weight: 79 kg

DRUGS (27)
  1. VERSED [Concomitant]
     Route: 042
  2. INSULIN [Concomitant]
     Route: 042
  3. PHENYLEPHRINE HCL [Concomitant]
     Route: 042
  4. HEPARIN [Concomitant]
     Route: 042
  5. LASIX [Concomitant]
     Dosage: 20 MG, QD
  6. MAGNESIUM SULFATE [Concomitant]
     Route: 042
  7. ALTACE [Concomitant]
     Dosage: 10 MG, QD
  8. EPINEPHRINE [Concomitant]
     Route: 042
  9. PROTAMINE SULFATE [Concomitant]
     Route: 042
  10. TRASYLOL [Suspect]
     Indication: CARDIAC ABLATION
  11. MILRINONE [Concomitant]
     Route: 042
  12. AMICAR [Concomitant]
     Dosage: 2 G, UNK
     Route: 042
  13. GLYBURIDE [Concomitant]
     Dosage: 2.5 MG, BID
  14. METFORMIN HCL [Concomitant]
     Dosage: 500 MG, BID
  15. POTASSIUM [Concomitant]
     Dosage: 10 MG 3 TIMES PER WEEK
  16. NITROGLYCERIN [Concomitant]
     Route: 042
  17. COUMADIN [Concomitant]
     Dosage: 5 MG, QD
  18. CALCIUM CHLORIDE [Concomitant]
     Dosage: 500 MG, UNK
     Route: 042
  19. ETOMIDATE [Concomitant]
     Route: 042
  20. TRASYLOL [Suspect]
     Indication: MITRAL VALVE REPAIR
     Dosage: 50 CC PER HOUR INFUSION
     Route: 042
     Dates: start: 20051117
  21. ASPIRIN [Concomitant]
     Dosage: 81 MG, QD
  22. LESCOL XL [Concomitant]
     Dosage: 80 MG, QD
  23. TOPROL-XL [Concomitant]
     Dosage: 100 MG, QD
  24. TRASYLOL [Suspect]
     Indication: PRODUCT USED FOR UNKNOWN INDICATION
     Dosage: 100 CC BOLUS X 2 DOSES
     Route: 042
     Dates: start: 20051117
  25. AMIODARONE HCL [Concomitant]
     Route: 042
  26. LEVOPHED [Concomitant]
     Route: 042
  27. SODIUM BICARBONATE [Concomitant]
     Route: 042

REACTIONS (15)
  - EMOTIONAL DISTRESS [None]
  - STRESS [None]
  - DEATH [None]
  - CARDIO-RESPIRATORY ARREST [None]
  - ANXIETY [None]
  - UNEVALUABLE EVENT [None]
  - FEAR [None]
  - MULTI-ORGAN FAILURE [None]
  - RENAL FAILURE [None]
  - CARDIOGENIC SHOCK [None]
  - RENAL INJURY [None]
  - RENAL IMPAIRMENT [None]
  - PAIN [None]
  - COAGULOPATHY [None]
  - DIALYSIS [None]
